FAERS Safety Report 12065989 (Version 1)
Quarter: 2016Q1

REPORT INFORMATION
  Report Type: Spontaneous
  Country: US (occurrence: None)
  Receive Date: 20160210
  Receipt Date: 20160210
  Transmission Date: 20160526
  Serious: Yes (Disabling)
  Sender: FDA-Public Use
  Company Number: None

PATIENT
  Age: 71 Year
  Sex: Female

DRUGS (6)
  1. OMEGA 3 [Concomitant]
     Active Substance: OMEGA-3 FATTY ACIDS
  2. CHOLESTACARE [Concomitant]
     Active Substance: .BETA.-SITOSTEROL\RED YEAST
  3. LUTEIN [Concomitant]
     Active Substance: LUTEIN
  4. SUPPLEMENTS [Concomitant]
     Active Substance: UNSPECIFIED INGREDIENT
  5. BIOTIN [Concomitant]
     Active Substance: BIOTIN
  6. LISINOPRIL AND HYDROCHLOROTHIAZIDE [Suspect]
     Active Substance: HYDROCHLOROTHIAZIDE\LISINOPRIL
     Indication: HYPERTENSION
     Dosage: 30 PILLS, ONCE DAILY, BY MOUTH
     Dates: start: 20151112, end: 201511

REACTIONS (5)
  - Seizure [None]
  - Tongue dry [None]
  - Tongue blistering [None]
  - Abdominal discomfort [None]
  - Dry throat [None]

NARRATIVE: CASE EVENT DATE: 20151112
